FAERS Safety Report 21572688 (Version 1)
Quarter: 2022Q4

REPORT INFORMATION
  Report Type: Report from Study
  Country: CA (occurrence: CA)
  Receive Date: 20221109
  Receipt Date: 20221109
  Transmission Date: 20230113
  Serious: Yes (Hospitalization, Other)
  Sender: FDA-Public Use
  Company Number: CA-ABBVIE-4192584

PATIENT
  Age: 73 Year
  Sex: Female

DRUGS (1)
  1. SKYRIZI [Suspect]
     Active Substance: RISANKIZUMAB-RZAA
     Indication: Psoriasis
     Dosage: STRENGTH: 75 MILLIGRAM
     Route: 058
     Dates: start: 20211105

REACTIONS (3)
  - Head injury [Unknown]
  - Atrial fibrillation [Unknown]
  - Fall [Unknown]

NARRATIVE: CASE EVENT DATE: 20221007
